FAERS Safety Report 15515720 (Version 1)
Quarter: 2018Q4

REPORT INFORMATION
  Report Type: Spontaneous
  Country: US (occurrence: US)
  Receive Date: 20181017
  Receipt Date: 20181017
  Transmission Date: 20190205
  Serious: No
  Sender: FDA-Public Use
  Company Number: US-TEVA-2018-US-962910

PATIENT
  Sex: Female

DRUGS (1)
  1. BACITRACIN ZINC. [Suspect]
     Active Substance: BACITRACIN ZINC
     Indication: RASH
     Dosage: 500 UNITS
     Route: 065

REACTIONS (4)
  - Acne [Not Recovered/Not Resolved]
  - Wound haemorrhage [Not Recovered/Not Resolved]
  - Discharge [Not Recovered/Not Resolved]
  - Drug ineffective [Unknown]
